FAERS Safety Report 20101971 (Version 1)
Quarter: 2021Q4

REPORT INFORMATION
  Report Type: Spontaneous
  Country: US (occurrence: US)
  Receive Date: 20211123
  Receipt Date: 20211123
  Transmission Date: 20220303
  Serious: Yes (Other)
  Sender: FDA-Public Use
  Company Number: US-LUPIN PHARMACEUTICALS INC.-2021-22872

PATIENT
  Age: 60 Year
  Sex: Male

DRUGS (4)
  1. CALCIUM [Interacting]
     Active Substance: CALCIUM
     Indication: Hypocalcaemia
     Dosage: 2000 MILLIGRAM, TID
     Route: 065
  2. CALCITRIOL [Interacting]
     Active Substance: CALCITRIOL
     Indication: Hypocalcaemia
     Dosage: 1 MICROGRAM, QD
     Route: 065
  3. LIRAGLUTIDE [Interacting]
     Active Substance: LIRAGLUTIDE
     Indication: Type 2 diabetes mellitus
     Dosage: UNK
     Route: 065
  4. DENOSUMAB [Concomitant]
     Active Substance: DENOSUMAB
     Indication: Osteolysis
     Dosage: UNK
     Route: 065

REACTIONS (3)
  - Drug interaction [Unknown]
  - Hypercalcaemia [Recovered/Resolved]
  - Acute kidney injury [Recovered/Resolved]
